FAERS Safety Report 17867425 (Version 2)
Quarter: 2021Q4

REPORT INFORMATION
  Report Type: Spontaneous
  Country: US (occurrence: US)
  Receive Date: 20200605
  Receipt Date: 20211029
  Transmission Date: 20220303
  Serious: Yes (Other)
  Sender: FDA-Public Use
  Company Number: US-GSKJP-US2020094236AA

PATIENT
  Sex: Male

DRUGS (4)
  1. ZANTAC [Suspect]
     Active Substance: RANITIDINE HYDROCHLORIDE
     Indication: Dyspepsia
     Dosage: UNK
     Route: 065
     Dates: end: 20050715
  2. ZANTAC [Suspect]
     Active Substance: RANITIDINE HYDROCHLORIDE
     Indication: Dyspepsia
     Dosage: 2-3 TIMES DAILY
     Route: 065
     Dates: start: 201001, end: 201812
  3. RANITIDINE [Suspect]
     Active Substance: RANITIDINE
     Indication: Dyspepsia
     Dosage: 2-3 TIMES DAILY
     Route: 065
     Dates: start: 201001, end: 201812
  4. RANITIDINE [Suspect]
     Active Substance: RANITIDINE
     Indication: Dyspepsia
     Dosage: 2-3 TIMES DAILY
     Route: 065
     Dates: start: 201001, end: 201812

REACTIONS (1)
  - Bladder cancer [Unknown]
